FAERS Safety Report 4874749-0 (Version None)
Quarter: 2006Q1

REPORT INFORMATION
  Report Type: 
  Country: None (occurrence: None)
  Receive Date: 20060105
  Receipt Date: 20060105
  Transmission Date: 20060701
  Serious: Yes (Hospitalization)
  Sender: FDA-Public Use
  Company Number: None

PATIENT
  Age: 47 Year
  Sex: Male
  Weight: 94.8018 kg

DRUGS (13)
  1. IRINOTECAN HCL [Suspect]
     Dosage: 50 MGM/M2 IV Q WX4
     Route: 042
     Dates: start: 20030818, end: 20031204
  2. CISPLATIN [Suspect]
     Dosage: 20 MG /M2 IV QW X 4
     Route: 042
     Dates: start: 20030818, end: 20031204
  3. PROZAC [Concomitant]
  4. PRILOSEC [Concomitant]
  5. ZESTRIL [Concomitant]
  6. LIPITOR [Concomitant]
  7. ASPIRIN [Concomitant]
  8. XANAX [Concomitant]
  9. SCOPALAMINE PATCH [Concomitant]
  10. ALLEGRIA [Concomitant]
  11. ANZEMET [Concomitant]
  12. DECADRON [Concomitant]
  13. WELLBUTRIN [Concomitant]

REACTIONS (6)
  - DYSPNOEA EXERTIONAL [None]
  - FEBRILE NEUTROPENIA [None]
  - OXYGEN SATURATION DECREASED [None]
  - PHARYNGOLARYNGEAL PAIN [None]
  - SINUS HEADACHE [None]
  - SINUS OPERATION [None]
